FAERS Safety Report 18880544 (Version 1)
Quarter: 2021Q1

REPORT INFORMATION
  Report Type: Report from Study
  Country: US (occurrence: US)
  Receive Date: 20210212
  Receipt Date: 20210212
  Transmission Date: 20210420
  Serious: Yes (Other)
  Sender: FDA-Public Use
  Company Number: US-ADVANZ PHARMA-202101000918

PATIENT

DRUGS (5)
  1. TRANYLCYPROMINE [Suspect]
     Active Substance: TRANYLCYPROMINE
     Indication: ACUTE MYELOID LEUKAEMIA
     Dosage: 10 MG, BID (WITH A 3?DAY LEAD?IN OF TCP MONOTHERAPY IN CYCLE 1)
     Route: 048
  2. TRANYLCYPROMINE [Suspect]
     Active Substance: TRANYLCYPROMINE
     Indication: MYELODYSPLASTIC SYNDROME
     Dosage: 20 MG, BID (WITH A 3?DAY LEAD?IN OF TCP MONOTHERAPY IN CYCLE 1)
     Route: 048
  3. TRANYLCYPROMINE [Suspect]
     Active Substance: TRANYLCYPROMINE
     Dosage: 30 MG, BID (WITH A 3?DAY LEAD?IN OF TCP MONOTHERAPY IN CYCLE 1)
     Route: 048
  4. ALL?TRANS RETINOIC ACID [Suspect]
     Active Substance: TRETINOIN
     Indication: ACUTE MYELOID LEUKAEMIA
     Dosage: 45 MG/M2, QD
     Route: 048
  5. ALL?TRANS RETINOIC ACID [Suspect]
     Active Substance: TRETINOIN
     Indication: MYELODYSPLASTIC SYNDROME

REACTIONS (1)
  - Thrombocytopenia [Unknown]
